FAERS Safety Report 17709881 (Version 1)
Quarter: 2020Q2

REPORT INFORMATION
  Report Type: Spontaneous
  Country: US (occurrence: US)
  Receive Date: 20200427
  Receipt Date: 20200427
  Transmission Date: 20200714
  Serious: Yes (Other)
  Sender: FDA-Public Use
  Company Number: US-ROCHE-2587406

PATIENT
  Sex: Male
  Weight: 95.34 kg

DRUGS (1)
  1. VALIUM [Suspect]
     Active Substance: DIAZEPAM
     Indication: NERVOUS SYSTEM DISORDER
     Dosage: ONGOING: NO
     Route: 048

REACTIONS (9)
  - Intervertebral disc degeneration [Unknown]
  - Spinal compression fracture [Unknown]
  - Musculoskeletal disorder [Unknown]
  - Spinal osteoarthritis [Unknown]
  - Neuropathy peripheral [Unknown]
  - Road traffic accident [Unknown]
  - Body height decreased [Unknown]
  - Radiculopathy [Unknown]
  - Lymphoma [Unknown]
